FAERS Safety Report 5697505-2 (Version None)
Quarter: 2008Q2

REPORT INFORMATION
  Report Type: 
  Country: None (occurrence: None)
  Receive Date: 20080408
  Receipt Date: 20080331
  Transmission Date: 20081010
  Serious: Yes (Hospitalization)
  Sender: FDA-Public Use
  Company Number: US-BAYER-200818456NA

PATIENT
  Age: 24 Year
  Sex: Female
  Weight: 77 kg

DRUGS (1)
  1. MIRENA [Suspect]
     Indication: CONTRACEPTION
     Route: 015
     Dates: start: 20070101

REACTIONS (8)
  - AMENORRHOEA [None]
  - CONVULSION [None]
  - DISORIENTATION [None]
  - FALL [None]
  - FEELING OF BODY TEMPERATURE CHANGE [None]
  - ORAL PAIN [None]
  - POOR QUALITY SLEEP [None]
  - TONGUE BITING [None]
